FAERS Safety Report 12204979 (Version 1)
Quarter: 2016Q1

REPORT INFORMATION
  Report Type: Spontaneous
  Country: US (occurrence: US)
  Receive Date: 20160323
  Receipt Date: 20160323
  Transmission Date: 20160526
  Serious: No
  Sender: FDA-Public Use
  Company Number: US-WARNER CHILCOTT, LLC-1049506

PATIENT
  Age: 65 Year
  Sex: Female

DRUGS (12)
  1. NITRO [Concomitant]
     Active Substance: NITROGLYCERIN
  2. LASIX [Concomitant]
     Active Substance: FUROSEMIDE
  3. EPIPEN [Concomitant]
     Active Substance: EPINEPHRINE
  4. AMLODIPINE [Concomitant]
     Active Substance: AMLODIPINE BESYLATE
  5. TOPROL XL [Concomitant]
     Active Substance: METOPROLOL SUCCINATE
  6. ZOCOR [Concomitant]
     Active Substance: SIMVASTATIN
  7. EFFIENT [Concomitant]
     Active Substance: PRASUGREL HYDROCHLORIDE
  8. KRILL OIL [Concomitant]
     Active Substance: DIETARY SUPPLEMENT
  9. ESTRACE [Suspect]
     Active Substance: ESTRADIOL
     Indication: URETHRAL PROLAPSE
     Route: 067
     Dates: start: 20150813, end: 20150813
  10. LANSOPRAZOLE. [Concomitant]
     Active Substance: LANSOPRAZOLE
  11. ASPIRIN. [Concomitant]
     Active Substance: ASPIRIN
  12. CALCIUM [Concomitant]
     Active Substance: CALCIUM

REACTIONS (7)
  - Dry mouth [Recovering/Resolving]
  - Oral pruritus [Recovering/Resolving]
  - Mouth ulceration [Recovering/Resolving]
  - Headache [Recovering/Resolving]
  - Dysgeusia [Recovering/Resolving]
  - Tongue disorder [Recovering/Resolving]
  - Throat irritation [Recovering/Resolving]

NARRATIVE: CASE EVENT DATE: 20150813
